FAERS Safety Report 12612251 (Version 1)
Quarter: 2016Q3

REPORT INFORMATION
  Report Type: Report from Study
  Country: BR (occurrence: BR)
  Receive Date: 20160801
  Receipt Date: 20160801
  Transmission Date: 20161109
  Serious: Yes (Life-Threatening, Other)
  Sender: FDA-Public Use
  Company Number: PHHY2016BR103338

PATIENT
  Sex: Female
  Weight: 70 kg

DRUGS (1)
  1. FORASEQ [Suspect]
     Active Substance: BUDESONIDE\FORMOTEROL FUMARATE
     Indication: ASTHMA
     Dosage: 1 DF, QOD (BUDESONIDE 400 MCG, FORMOTEROL FUMARATE 12 MCG) (12/12 HOURS)
     Route: 055
     Dates: start: 2013

REACTIONS (12)
  - Dyspnoea [Recovering/Resolving]
  - Cardiac murmur [Recovering/Resolving]
  - Tremor [Recovering/Resolving]
  - Fatigue [Recovering/Resolving]
  - Inappropriate schedule of drug administration [Unknown]
  - Heart rate increased [Recovering/Resolving]
  - Arrhythmia [Recovering/Resolving]
  - Agitation [Recovering/Resolving]
  - Asthmatic crisis [Recovering/Resolving]
  - Apparent death [Recovering/Resolving]
  - Nervousness [Recovering/Resolving]
  - Chills [Recovering/Resolving]
